FAERS Safety Report 6008237-5 (Version None)
Quarter: 2008Q4

REPORT INFORMATION
  Report Type: 
  Country: None (occurrence: None)
  Receive Date: 20081217
  Receipt Date: 20081205
  Transmission Date: 20090506
  Serious: Yes (Hospitalization, Other)
  Sender: FDA-Public Use
  Company Number: CH-WYE-G02723908

PATIENT
  Age: 79 Year
  Sex: Male

DRUGS (9)
  1. EFFEXOR [Suspect]
     Indication: DEPRESSION
     Route: 048
     Dates: start: 20070607, end: 20070101
  2. EFFEXOR [Interacting]
     Route: 048
     Dates: start: 20070101, end: 20070701
  3. RISPERDAL [Interacting]
     Indication: PSYCHOTIC DISORDER
     Route: 048
     Dates: start: 20070506, end: 20070701
  4. SERETIDE [Concomitant]
     Dosage: UNSPECIFIED
  5. LISINOPRIL [Interacting]
     Route: 048
  6. ASPIRIN [Concomitant]
     Route: 048
  7. SPIRIVA [Concomitant]
     Route: 055
  8. REMERON [Interacting]
     Indication: DEPRESSION
     Route: 048
     Dates: start: 20070301, end: 20070701
  9. LAXOBERON [Interacting]
     Route: 048
     Dates: end: 20070701

REACTIONS (10)
  - CONDITION AGGRAVATED [None]
  - CYSTITIS [None]
  - DRUG INTERACTION [None]
  - ESCHERICHIA URINARY TRACT INFECTION [None]
  - GENERAL PHYSICAL HEALTH DETERIORATION [None]
  - HYPONATRAEMIA [None]
  - INAPPROPRIATE ANTIDIURETIC HORMONE SECRETION [None]
  - RENAL FAILURE [None]
  - URINE OSMOLARITY INCREASED [None]
  - UROSEPSIS [None]
